FAERS Safety Report 12092873 (Version 1)
Quarter: 2016Q1

REPORT INFORMATION
  Report Type: Report from Study
  Country: FR (occurrence: FR)
  Receive Date: 20160219
  Receipt Date: 20160219
  Transmission Date: 20160526
  Serious: Yes (Hospitalization, Other)
  Sender: FDA-Public Use
  Company Number: FR-ACTELION-A-CH2015-129235

PATIENT
  Age: 53 Year
  Sex: Female
  Weight: 42.5 kg

DRUGS (1)
  1. TRACLEER [Suspect]
     Active Substance: BOSENTAN
     Indication: SCLERODERMA ASSOCIATED DIGITAL ULCER
     Dosage: 125 MG, BID
     Route: 048
     Dates: start: 20050301, end: 20140520

REACTIONS (14)
  - Abdominal pain [Unknown]
  - Portal hypertension [Unknown]
  - Biopsy liver [Unknown]
  - Splenomegaly [Unknown]
  - Liver function test abnormal [Unknown]
  - Pancreatitis [Unknown]
  - Neutropenia [Not Recovered/Not Resolved]
  - Thrombocytopenia [Not Recovered/Not Resolved]
  - Hepatic fibrosis [Unknown]
  - Hepatic cirrhosis [Unknown]
  - Hypersplenism [Not Recovered/Not Resolved]
  - Pancytopenia [Not Recovered/Not Resolved]
  - Iron deficiency anaemia [Not Recovered/Not Resolved]
  - Biopsy bone [Unknown]

NARRATIVE: CASE EVENT DATE: 201311
